FAERS Safety Report 11097549 (Version 5)
Quarter: 2015Q3

REPORT INFORMATION
  Report Type: Spontaneous
  Country: US (occurrence: US)
  Receive Date: 20150507
  Receipt Date: 20150818
  Transmission Date: 20151125
  Serious: Yes (Other)
  Sender: FDA-Public Use
  Company Number: US-GLAXOSMITHKLINE-US2015GSK061643

PATIENT
  Sex: Male

DRUGS (2)
  1. VOTRIENT [Suspect]
     Active Substance: PAZOPANIB HYDROCHLORIDE
     Indication: PRODUCT USED FOR UNKNOWN INDICATION
     Dosage: 200 MG, U
  2. VOTRIENT [Suspect]
     Active Substance: PAZOPANIB HYDROCHLORIDE
     Dosage: 800 MG, U

REACTIONS (14)
  - Abasia [Unknown]
  - Asthenia [Unknown]
  - Abdominal discomfort [Unknown]
  - Hypophagia [Unknown]
  - Drug intolerance [Unknown]
  - Dysgeusia [Unknown]
  - Dyspnoea [Unknown]
  - Dizziness [Unknown]
  - Weight decreased [Unknown]
  - Neoplasm malignant [Unknown]
  - Fatigue [Unknown]
  - Decreased appetite [Unknown]
  - Diarrhoea [Unknown]
  - Nail discolouration [Unknown]
